FAERS Safety Report 10146484 (Version 2)
Quarter: 2014Q3

REPORT INFORMATION
  Report Type: Spontaneous
  Country: US (occurrence: None)
  Receive Date: 20140429
  Receipt Date: 20140904
  Transmission Date: 20150326
  Serious: Yes (Other)
  Sender: FDA-Public Use
  Company Number: ADR-2014-00705

PATIENT
  Age: 43 Year
  Sex: Female

DRUGS (2)
  1. BACLOFEN. [Suspect]
     Active Substance: BACLOFEN
     Indication: MUSCLE SPASTICITY
  2. BACLOFEN. [Suspect]
     Active Substance: BACLOFEN

REACTIONS (4)
  - Hydrocephalus [None]
  - Muscle spasms [None]
  - Cerebrospinal fluid leakage [None]
  - Abasia [None]
